FAERS Safety Report 12071933 (Version 1)
Quarter: 2016Q1

REPORT INFORMATION
  Report Type: Report from Study
  Country: US (occurrence: US)
  Receive Date: 20160212
  Receipt Date: 20160212
  Transmission Date: 20160526
  Serious: Yes (Death, Hospitalization)
  Sender: FDA-Public Use
  Company Number: US-ROCHE-390935

PATIENT
  Age: 67 Year
  Sex: Male
  Weight: 58.9 kg

DRUGS (2)
  1. BEVACIZUMAB [Suspect]
     Active Substance: BEVACIZUMAB
     Indication: SQUAMOUS CELL CARCINOMA OF HEAD AND NECK
     Dosage: GIVEN ON DAY ONE OF A THREE WEEK CYCLE.?LAST DOSE PRIOR TO SAE 15/NOV/2004
     Route: 042
  2. ERLOTINIB [Suspect]
     Active Substance: ERLOTINIB
     Indication: SQUAMOUS CELL CARCINOMA OF HEAD AND NECK
     Dosage: LAST DOSE PRIOR TO SAE 08/NOV/2004
     Route: 048

REACTIONS (4)
  - Infection [Unknown]
  - Respiratory failure [Fatal]
  - Sinus bradycardia [Unknown]
  - Syncope [Unknown]

NARRATIVE: CASE EVENT DATE: 20041121
